FAERS Safety Report 7928105-9 (Version None)
Quarter: 2011Q4

REPORT INFORMATION
  Report Type: 
  Country: None (occurrence: None)
  Receive Date: 20111118
  Receipt Date: 20111107
  Transmission Date: 20120403
  Serious: Yes (Hospitalization)
  Sender: FDA-Public Use
  Company Number: NL-GLAXOSMITHKLINE-B0763387A

PATIENT
  Sex: Female
  Weight: 66.8 kg

DRUGS (3)
  1. DEXAMETHASONE [Concomitant]
     Indication: NASAL OBSTRUCTION
     Dosage: 1.5MG TWICE PER DAY
     Route: 048
     Dates: start: 20111026
  2. PAZOPANIB [Suspect]
     Indication: NEOPLASM MALIGNANT
     Dosage: 200MG PER DAY
     Route: 048
     Dates: start: 20111101
  3. DOCETAXEL [Suspect]
     Indication: NEOPLASM MALIGNANT
     Route: 042

REACTIONS (1)
  - ILEUS [None]
